FAERS Safety Report 6386902-8 (Version None)
Quarter: 2009Q4

REPORT INFORMATION
  Report Type: 
  Country: None (occurrence: None)
  Receive Date: 20091002
  Receipt Date: 20090930
  Transmission Date: 20100525
  Serious: Yes (Other)
  Sender: FDA-Public Use
  Company Number: US-GILEAD-2009-0024432

PATIENT
  Sex: Female

DRUGS (17)
  1. LETAIRIS [Suspect]
     Indication: PULMONARY ARTERIAL HYPERTENSION
     Route: 048
     Dates: start: 20090709
  2. LASIX [Concomitant]
  3. TORSEMIDE [Concomitant]
  4. MICARDIS [Concomitant]
  5. SPIRONOLACTONE [Concomitant]
  6. FLURAZEPAM [Concomitant]
  7. GEODON [Concomitant]
  8. FLUOXETINE [Concomitant]
  9. ADVAIR DISKUS 100/50 [Concomitant]
  10. SPIRIVA [Concomitant]
  11. PROAIR HFA [Concomitant]
  12. NOVOLOG [Concomitant]
  13. LANTUS [Concomitant]
  14. FISH OIL [Concomitant]
  15. VITAMIN B-12 [Concomitant]
  16. M.V.I. [Concomitant]
  17. CALCIUM [Concomitant]

REACTIONS (2)
  - BLOOD CREATININE INCREASED [None]
  - OROPHARYNGEAL PAIN [None]
